FAERS Safety Report 20652012 (Version 1)
Quarter: 2022Q1

REPORT INFORMATION
  Report Type: Report from Study
  Country: US (occurrence: US)
  Receive Date: 20220330
  Receipt Date: 20220330
  Transmission Date: 20220423
  Serious: Yes (Other)
  Sender: FDA-Public Use
  Company Number: US-NOVARTISTESTPH-NVSC2022US069930

PATIENT
  Sex: Male

DRUGS (2)
  1. AFINITOR [Suspect]
     Active Substance: EVEROLIMUS
     Indication: Angiomyolipoma
     Dosage: 12.5 MG, QD
     Route: 048
     Dates: start: 20121127, end: 20211207
  2. AFINITOR [Suspect]
     Active Substance: EVEROLIMUS
     Dosage: UNK (AT THE END OF FEB OR EARLY MAR)
     Route: 065

REACTIONS (2)
  - Seizure [Recovering/Resolving]
  - COVID-19 [Recovering/Resolving]
